FAERS Safety Report 14565568 (Version 1)
Quarter: 2018Q1

REPORT INFORMATION
  Report Type: Report from Study
  Country: CA (occurrence: CA)
  Receive Date: 20180223
  Receipt Date: 20180223
  Transmission Date: 20180509
  Serious: Yes (Other)
  Sender: FDA-Public Use
  Company Number: CA-UCBSA-2018004073

PATIENT
  Age: 58 Year
  Sex: Female

DRUGS (6)
  1. AERIUS [Concomitant]
     Active Substance: DESLORATADINE
     Indication: PRURITUS GENERALISED
     Dosage: UNK
     Dates: start: 201801
  2. AERIUS [Concomitant]
     Active Substance: DESLORATADINE
     Indication: RASH
  3. CERTOLIZUMAB PEGOL PSA [Suspect]
     Active Substance: CERTOLIZUMAB PEGOL
     Dosage: 400 MG, EV 4 WEEKS, MAINTENANCE DOSE
     Route: 058
     Dates: start: 201801
  4. TRIAMCINOLONE [Concomitant]
     Active Substance: TRIAMCINOLONE
     Indication: PRURITUS GENERALISED
     Dosage: UNK
     Dates: start: 201801
  5. CERTOLIZUMAB PEGOL PSA [Suspect]
     Active Substance: CERTOLIZUMAB PEGOL
     Indication: PSORIATIC ARTHROPATHY
     Dosage: 400 MG, EV 2 WEEKS(QOW), INDUCTION DOSE, Q2WK X 3
     Route: 058
     Dates: start: 20171217, end: 201801
  6. TRIAMCINOLONE [Concomitant]
     Active Substance: TRIAMCINOLONE
     Indication: RASH

REACTIONS (7)
  - Influenza [Unknown]
  - Pneumonia [Unknown]
  - Rash [Unknown]
  - Chest discomfort [Unknown]
  - Ear infection [Unknown]
  - Asthenia [Unknown]
  - Pruritus generalised [Unknown]

NARRATIVE: CASE EVENT DATE: 201801
